FAERS Safety Report 12013589 (Version 1)
Quarter: 2016Q1

REPORT INFORMATION
  Report Type: Spontaneous
  Country: FR (occurrence: FR)
  Receive Date: 20160205
  Receipt Date: 20160205
  Transmission Date: 20160526
  Serious: Yes (Hospitalization, Other)
  Sender: FDA-Public Use
  Company Number: FR-ELI_LILLY_AND_COMPANY-FR201601008783

PATIENT
  Age: 41 Year
  Sex: Male
  Weight: 76.6 kg

DRUGS (14)
  1. CIALIS [Suspect]
     Active Substance: TADALAFIL
     Indication: DRUG ABUSE
     Dosage: UNK, UNKNOWN
     Route: 065
  2. TESTOSTERONE. [Suspect]
     Active Substance: TESTOSTERONE
     Indication: DRUG ABUSE
     Dosage: 500 MG, UNK
     Route: 048
     Dates: end: 20151021
  3. EXEMESTANE. [Suspect]
     Active Substance: EXEMESTANE
     Indication: DRUG ABUSE
     Dosage: UNK, UNKNOWN
     Route: 065
  4. CLENBUTEROL [Suspect]
     Active Substance: CLENBUTEROL
     Indication: DRUG ABUSE
     Dosage: UNK, UNKNOWN
     Route: 065
  5. CITRULLINE [Concomitant]
     Active Substance: CITRULLINE
     Indication: MUSCLE MASS
     Dosage: UNK, UNKNOWN
     Route: 065
  6. BROMOCRIPTINE [Suspect]
     Active Substance: BROMOCRIPTINE
     Indication: DRUG ABUSE
     Dosage: UNK, UNKNOWN
     Route: 048
     Dates: end: 20151021
  7. LEVOTHYROX [Suspect]
     Active Substance: LEVOTHYROXINE
     Indication: DRUG ABUSE
     Dosage: UNK, UNKNOWN
     Route: 048
  8. LETROZOLE. [Suspect]
     Active Substance: LETROZOLE
     Indication: DRUG ABUSE
     Dosage: UNK, UNKNOWN
     Route: 065
  9. COLAGEN [Concomitant]
     Indication: MUSCLE MASS
  10. GLYCINE. [Concomitant]
     Active Substance: GLYCINE
     Indication: MUSCLE MASS
     Dosage: UNK, UNKNOWN
     Route: 065
  11. GUARANA                            /01333101/ [Concomitant]
     Indication: MUSCLE MASS
  12. TRENBOLONE [Suspect]
     Active Substance: TRENBOLONE
     Indication: DRUG ABUSE
     Dosage: 350 MG, UNKNOWN
     Route: 065
  13. OMEGA 3                            /01333901/ [Concomitant]
     Active Substance: FISH OIL\TOCOPHEROL
     Indication: PRODUCT USED FOR UNKNOWN INDICATION
  14. CREATINE [Concomitant]
     Active Substance: CREATINE
     Indication: MUSCLE MASS
     Dosage: UNK, UNKNOWN
     Route: 065

REACTIONS (13)
  - Congestive cardiomyopathy [Not Recovered/Not Resolved]
  - Blood thyroid stimulating hormone decreased [Unknown]
  - Blood follicle stimulating hormone decreased [Unknown]
  - Off label use [Unknown]
  - Hepatic neoplasm [Unknown]
  - Staphylococcus test positive [Unknown]
  - Blood luteinising hormone decreased [Unknown]
  - Aortic valve incompetence [Unknown]
  - Rhabdomyolysis [Unknown]
  - Mitral valve incompetence [Unknown]
  - Cardiac failure [Unknown]
  - Tricuspid valve incompetence [Unknown]
  - Toxicity to various agents [Unknown]

NARRATIVE: CASE EVENT DATE: 20151021
